FAERS Safety Report 9068271 (Version 1)
Quarter: 2013Q1

REPORT INFORMATION
  Report Type: Spontaneous
  Country: CA (occurrence: KH)
  Receive Date: 20130206
  Receipt Date: 20130206
  Transmission Date: 20140127
  Serious: Yes (Hospitalization)
  Sender: FDA-Public Use
  Company Number: CA-ASTRAZENECA-2013SE06386

PATIENT
  Age: 57 Year
  Sex: Female

DRUGS (3)
  1. QUETIAPINE [Suspect]
     Indication: MAJOR DEPRESSION
     Route: 048
  2. RISPERIDONE [Suspect]
     Indication: MAJOR DEPRESSION
  3. RISPERIDONE [Suspect]
     Indication: MAJOR DEPRESSION
     Dosage: LOW DOSE

REACTIONS (1)
  - Serotonin syndrome [Recovered/Resolved]
